FAERS Safety Report 20673986 (Version 1)
Quarter: 2022Q2

REPORT INFORMATION
  Report Type: Spontaneous
  Country: CN (occurrence: CN)
  Receive Date: 20220405
  Receipt Date: 20220405
  Transmission Date: 20220720
  Serious: Yes (Other)
  Sender: FDA-Public Use
  Company Number: CN-SA-SAC20220404000987

PATIENT
  Age: 37 Year
  Sex: Male
  Weight: 61.5 kg

DRUGS (3)
  1. OXALIPLATIN [Suspect]
     Active Substance: OXALIPLATIN
     Indication: Colon cancer
     Dosage: 200 MG, 1X
     Route: 041
     Dates: start: 20220210, end: 20220210
  2. CAPECITABINE [Suspect]
     Active Substance: CAPECITABINE
     Indication: Colon cancer
     Dosage: 150 MG, QD
     Route: 048
     Dates: start: 20220210, end: 20220224
  3. DEXTROSE [Concomitant]
     Active Substance: DEXTROSE
     Dosage: 500 ML, 1X
     Route: 041
     Dates: start: 20220210, end: 20220210

REACTIONS (1)
  - Liver injury [Recovering/Resolving]

NARRATIVE: CASE EVENT DATE: 20220307
